FAERS Safety Report 7484088-X (Version None)
Quarter: 2011Q2

REPORT INFORMATION
  Report Type: 
  Country: None (occurrence: None)
  Receive Date: 20110517
  Receipt Date: 20110511
  Transmission Date: 20111010
  Serious: Yes (Life-Threatening, Hospitalization, Other)
  Sender: FDA-Public Use
  Company Number: BR-ABBOTT-08P-020-0453413-00

PATIENT
  Sex: Female
  Weight: 80 kg

DRUGS (10)
  1. HUMIRA [Suspect]
     Indication: ANKYLOSING SPONDYLITIS
     Route: 058
     Dates: start: 20060301, end: 20080131
  2. QUETIAPINE FUMARATE [Concomitant]
     Indication: DEPRESSION
     Route: 048
     Dates: start: 20110301
  3. AMLODIPINE BESYLATE [Concomitant]
     Indication: BLOOD PRESSURE
     Route: 048
     Dates: start: 20080101
  4. ATENOLOL [Concomitant]
     Indication: BLOOD PRESSURE
     Route: 048
     Dates: start: 20080101
  5. PANTOPRAZOLE [Concomitant]
     Indication: GASTROINTESTINAL DISORDER
     Route: 048
     Dates: start: 20080101
  6. VITAMIN E [Concomitant]
     Indication: LIVER DISORDER
     Route: 048
     Dates: start: 20091201
  7. HUMIRA [Suspect]
  8. VITAMIN C [Concomitant]
     Indication: LIVER DISORDER
     Route: 048
     Dates: start: 20091201
  9. DIPYRONE [Suspect]
     Indication: PRODUCT USED FOR UNKNOWN INDICATION
  10. ESTAZOLAM [Concomitant]
     Indication: SLEEP DISORDER THERAPY
     Route: 048

REACTIONS (12)
  - BACK PAIN [None]
  - ARTHRALGIA [None]
  - HEPATITIS [None]
  - DIARRHOEA [None]
  - PAIN IN EXTREMITY [None]
  - ESCHERICHIA INFECTION [None]
  - HAEMORRHAGE [None]
  - AZOTAEMIA [None]
  - MUSCULOSKELETAL PAIN [None]
  - ANAPHYLACTIC SHOCK [None]
  - LIVER DISORDER [None]
  - KIDNEY INFECTION [None]
